FAERS Safety Report 7953363 (Version 3)
Quarter: 2013Q1

REPORT INFORMATION
  Report Type: Spontaneous
  Country: US (occurrence: US)
  Receive Date: 20110520
  Receipt Date: 20130312
  Transmission Date: 20140127
  Serious: Yes (Other)
  Sender: FDA-Public Use
  Company Number: US-BAYER-2011-042811

PATIENT
  Age: 39 Year
  Sex: Female
  Weight: 59.41 kg

DRUGS (11)
  1. YAZ [Suspect]
     Indication: CONTRACEPTION
     Dosage: UNK
     Route: 048
     Dates: start: 200901, end: 200907
  2. SYNTHROID [Concomitant]
     Indication: HYPOTHYROIDISM
     Dosage: UNK
     Dates: start: 1997
  3. PAXIL [Concomitant]
     Indication: ANXIETY
     Dosage: UNK MG, UNK
     Dates: start: 2000
  4. PAXIL [Concomitant]
     Indication: ANXIETY
     Dosage: 10 MG, UNK
  5. SOLODYN [Concomitant]
     Dosage: 90 MG, UNK
     Dates: start: 20071101, end: 20071123
  6. RELAFEN [Concomitant]
     Dosage: 750 MG, UNK
     Dates: start: 20080130, end: 20090526
  7. IRON W/VITAMIN C [Concomitant]
     Dosage: 500 MG, UNK
     Dates: start: 20080303, end: 20090526
  8. WELLBUTRIN XL [Concomitant]
     Dosage: 150 MG, UNK
     Dates: start: 20080618, end: 20090526
  9. LUNESTA [Concomitant]
     Dosage: 2 MG, UNK
     Dates: start: 20090121, end: 20090526
  10. AMOXICILLIN [Concomitant]
  11. THYROID [Concomitant]
     Dosage: 90 MG, UNK

REACTIONS (5)
  - Deep vein thrombosis [None]
  - Injury [None]
  - Pain [None]
  - Contusion [None]
  - Thrombophlebitis superficial [Recovered/Resolved]
